FAERS Safety Report 4559001-5 (Version None)
Quarter: 2005Q1

REPORT INFORMATION
  Report Type: 
  Country: None (occurrence: None)
  Receive Date: 20050124
  Receipt Date: 20041214
  Transmission Date: 20050727
  Serious: Yes (Hospitalization, Other)
  Sender: FDA-Public Use
  Company Number: PHBS2004JP16954

PATIENT
  Age: 59 Year
  Sex: Female
  Weight: 46 kg

DRUGS (4)
  1. ULCERLMIN [Concomitant]
     Route: 048
     Dates: start: 20041105
  2. GASTER D [Concomitant]
     Dosage: UNK, UNK
     Route: 048
     Dates: start: 20041105
  3. LOXONIN [Concomitant]
     Dosage: UNK, UNK
     Route: 048
     Dates: start: 20041105
  4. NEORAL [Suspect]
     Indication: CORNEAL TRANSPLANT
     Dosage: 6 CAP/D
     Route: 048
     Dates: start: 20041105, end: 20041118

REACTIONS (6)
  - ABDOMINAL PAIN UPPER [None]
  - DUODENAL STENOSIS [None]
  - NAUSEA [None]
  - OEDEMA MUCOSAL [None]
  - VIRAL INFECTION [None]
  - VOMITING [None]
